FAERS Safety Report 19097414 (Version 1)
Quarter: 2021Q2

REPORT INFORMATION
  Report Type: Spontaneous
  Country: US (occurrence: US)
  Receive Date: 20210406
  Receipt Date: 20210406
  Transmission Date: 20210717
  Serious: Yes (Other)
  Sender: FDA-Public Use
  Company Number: US-PURDUE-USA-2021-0239725

PATIENT
  Sex: Male

DRUGS (1)
  1. HYDROCODONE BITARTRATE AND ACETAMINOPHEN [Suspect]
     Active Substance: ACETAMINOPHEN\HYDROCODONE BITARTRATE
     Indication: PRODUCT USED FOR UNKNOWN INDICATION
     Dosage: UNKNOWN
     Route: 048

REACTIONS (8)
  - Cardiac disorder [Unknown]
  - Learning disability [Unknown]
  - Pharyngeal swelling [Unknown]
  - Bone pain [Unknown]
  - Drug dependence [Unknown]
  - Amnesia [Unknown]
  - Peripheral swelling [Unknown]
  - Liver disorder [Unknown]
